FAERS Safety Report 7668873 (Version 9)
Quarter: 2013Q1

REPORT INFORMATION
  Report Type: Report from Study
  Country: US (occurrence: US)
  Receive Date: 20101115
  Receipt Date: 20130207
  Transmission Date: 20140127
  Serious: Yes (Hospitalization)
  Sender: FDA-Public Use
  Company Number: US-ABBOTT-10P-163-0683831-00

PATIENT
  Age: 63 Year
  Sex: Male
  Weight: 88.98 kg

DRUGS (7)
  1. HUMIRA [Suspect]
     Indication: RHEUMATOID ARTHRITIS
     Route: 058
     Dates: start: 20101018, end: 20101101
  2. METHOTREXATE [Suspect]
     Indication: RHEUMATOID ARTHRITIS
     Route: 048
     Dates: start: 20101018
  3. HYDROCODONE W/APAP [Concomitant]
     Indication: ANALGESIC THERAPY
     Route: 048
     Dates: start: 20100727, end: 20101013
  4. HYDROCODONE W/APAP [Concomitant]
     Route: 048
     Dates: start: 20101013, end: 20101119
  5. PREDNISONE [Concomitant]
     Indication: ANALGESIC THERAPY
     Route: 048
     Dates: start: 20100726, end: 20101022
  6. PREDNISONE [Concomitant]
     Indication: INFLAMMATION
  7. METHOTREXATE [Concomitant]
     Indication: ANTIINFLAMMATORY THERAPY
     Route: 048
     Dates: start: 20100802, end: 20101011

REACTIONS (1)
  - Colitis ischaemic [Recovered/Resolved]
